FAERS Safety Report 20804037 (Version 1)
Quarter: 2022Q2

REPORT INFORMATION
  Report Type: Spontaneous
  Country: US (occurrence: US)
  Receive Date: 20220509
  Receipt Date: 20220509
  Transmission Date: 20220720
  Serious: No
  Sender: FDA-Public Use
  Company Number: US-PFIZER INC-202200434207

PATIENT
  Age: 43 Year
  Sex: Female

DRUGS (2)
  1. BOSULIF [Suspect]
     Active Substance: BOSUTINIB MONOHYDRATE
     Dosage: 500 MG
     Route: 048
     Dates: start: 20220223
  2. CARVEDILOL [Suspect]
     Active Substance: CARVEDILOL
     Dosage: UNK

REACTIONS (6)
  - Bone pain [Unknown]
  - Illness [Unknown]
  - Vomiting [Unknown]
  - Pruritus [Unknown]
  - Dyspepsia [Unknown]
  - Diarrhoea [Unknown]
